FAERS Safety Report 7486554-X (Version None)
Quarter: 2011Q2

REPORT INFORMATION
  Report Type: 
  Country: None (occurrence: None)
  Receive Date: 20110517
  Receipt Date: 20110511
  Transmission Date: 20111010
  Serious: Yes (Death, Other)
  Sender: FDA-Public Use
  Company Number: JP-PFIZER INC-2011100469

PATIENT
  Age: 61 Year
  Sex: Male

DRUGS (2)
  1. SORAFENIB [Suspect]
     Indication: RENAL CANCER METASTATIC
  2. SUTENT [Suspect]
     Indication: RENAL CANCER METASTATIC
     Route: 048

REACTIONS (1)
  - INTERSTITIAL LUNG DISEASE [None]
